FAERS Safety Report 22183088 (Version 1)
Quarter: 2023Q2

REPORT INFORMATION
  Report Type: Spontaneous
  Country: US (occurrence: US)
  Receive Date: 20230406
  Receipt Date: 20230406
  Transmission Date: 20230721
  Serious: No
  Sender: FDA-Public Use
  Company Number: US-Evolus, Inc.-2022EV000349

PATIENT
  Age: 65 Year
  Sex: Female

DRUGS (2)
  1. JEUVEAU [Suspect]
     Active Substance: PRABOTULINUMTOXINA-XVFS
     Indication: Skin wrinkling
     Dosage: 12 UNITS FOREHEAD, 10 UNITS GLABELLA
     Dates: start: 20221004, end: 20221004
  2. JEUVEAU [Suspect]
     Active Substance: PRABOTULINUMTOXINA-XVFS
     Indication: Product used for unknown indication
     Dosage: 12 UNITS FOREHEAD, 10 UNITS GLABELLA
     Dates: start: 20221101, end: 20221101

REACTIONS (2)
  - Drug ineffective [Unknown]
  - Off label use [Unknown]
